FAERS Safety Report 10954944 (Version 1)
Quarter: 2015Q1

REPORT INFORMATION
  Report Type: Report from Study
  Country: BR (occurrence: BR)
  Receive Date: 20150325
  Receipt Date: 20150325
  Transmission Date: 20150721
  Serious: Yes (Other)
  Sender: FDA-Public Use
  Company Number: PHHY2015BR035254

PATIENT
  Sex: Female
  Weight: 73 kg

DRUGS (1)
  1. ACLASTA [Suspect]
     Active Substance: ZOLEDRONIC ACID
     Indication: OSTEOPOROSIS
     Dosage: UNK, ONCE A YEAR
     Route: 042
     Dates: start: 20140916

REACTIONS (6)
  - Gait disturbance [Unknown]
  - Fall [Recovering/Resolving]
  - Abdominal pain [Not Recovered/Not Resolved]
  - Back pain [Not Recovered/Not Resolved]
  - Femur fracture [Recovering/Resolving]
  - Poor quality sleep [Unknown]
